FAERS Safety Report 7836512-8 (Version None)
Quarter: 2011Q4

REPORT INFORMATION
  Report Type: 
  Country: None (occurrence: None)
  Receive Date: 20111024
  Receipt Date: 20110502
  Transmission Date: 20120403
  Serious: No
  Sender: FDA-Public Use
  Company Number: US-ABBOTT-11P-163-0723597-00

PATIENT
  Sex: Female
  Weight: 78.542 kg

DRUGS (3)
  1. ADDERALL 5 [Concomitant]
     Indication: PRODUCT USED FOR UNKNOWN INDICATION
  2. LUPRON DEPOT [Suspect]
     Indication: ENDOMETRIOSIS
     Dates: start: 20101001
  3. NAPROXEN [Concomitant]
     Indication: PAIN

REACTIONS (1)
  - ARTHRALGIA [None]
